FAERS Safety Report 9070990 (Version 1)
Quarter: 2013Q1

REPORT INFORMATION
  Report Type: Spontaneous
  Country: US (occurrence: US)
  Receive Date: 20130206
  Receipt Date: 20130206
  Transmission Date: 20140127
  Serious: No
  Sender: FDA-Public Use
  Company Number: US-ALLERGAN-1207583US

PATIENT
  Age: 55 Year
  Sex: Female

DRUGS (1)
  1. RESTASIS? [Suspect]
     Indication: DRY EYE
     Dosage: 2 GTT, UNK
     Route: 047
     Dates: start: 20120530

REACTIONS (3)
  - Paraesthesia oral [Recovering/Resolving]
  - Product taste abnormal [Not Recovered/Not Resolved]
  - Headache [Recovering/Resolving]
